FAERS Safety Report 7689464-8 (Version None)
Quarter: 2011Q3

REPORT INFORMATION
  Report Type: 
  Country: None (occurrence: None)
  Receive Date: 20110817
  Receipt Date: 20110808
  Transmission Date: 20111222
  Serious: Yes (Other)
  Sender: FDA-Public Use
  Company Number: BR-ASTRAZENECA-2011SE48105

PATIENT
  Age: 64 Year
  Sex: Female
  Weight: 82 kg

DRUGS (4)
  1. TENORETIC 100 [Suspect]
     Indication: HYPERTENSION
     Dosage: ONCE A DAY
     Route: 048
     Dates: start: 20100101, end: 20100101
  2. ATACAND HCT [Suspect]
     Indication: HYPERTENSION
     Dosage: 16/12.5 MG ONCE A DAY
     Route: 048
     Dates: start: 20100101
  3. PRESSAT [Concomitant]
     Indication: HYPERTENSION
     Route: 048
     Dates: start: 20100101
  4. LEVOTHYROXINE SODIUM [Concomitant]
     Route: 048
     Dates: start: 20040101

REACTIONS (7)
  - HYPERTRIGLYCERIDAEMIA [None]
  - FOOT FRACTURE [None]
  - FALL [None]
  - WEIGHT INCREASED [None]
  - BLOOD PRESSURE INADEQUATELY CONTROLLED [None]
  - DRUG INEFFECTIVE [None]
  - OEDEMA PERIPHERAL [None]
